FAERS Safety Report 5467333-1 (Version None)
Quarter: 2007Q3

REPORT INFORMATION
  Report Type: 
  Country: None (occurrence: None)
  Receive Date: 20070925
  Receipt Date: 20070919
  Transmission Date: 20080115
  Serious: Yes (Death, Hospitalization, Other)
  Sender: FDA-Public Use
  Company Number: US-PFIZER INC-2006151531

PATIENT
  Sex: Male
  Weight: 54.4 kg

DRUGS (9)
  1. CELEBREX [Suspect]
     Indication: ARTHRALGIA
     Route: 048
     Dates: start: 20010801, end: 20050125
  2. BEXTRA [Suspect]
     Indication: ARTHRALGIA
     Route: 048
     Dates: start: 20050401, end: 20051201
  3. VIOXX [Suspect]
     Indication: ARTHRALGIA
     Route: 048
     Dates: start: 19990501, end: 20010801
  4. ASPIRIN [Concomitant]
     Indication: CARDIAC DISORDER
     Dates: start: 19990101, end: 20060707
  5. PREDNISONE [Concomitant]
     Indication: PAIN
     Dates: start: 20000714, end: 20051201
  6. NAPROXEN [Concomitant]
     Dates: start: 20050427, end: 20060701
  7. COVERA-HS [Concomitant]
     Indication: HYPERTENSION
     Dates: start: 20010411, end: 20041001
  8. ISOSORBIDE DINITRATE [Concomitant]
     Indication: HYPERTENSION
     Dates: start: 20001124, end: 20051201
  9. LIPITOR [Concomitant]
     Dates: start: 20031222, end: 20060701

REACTIONS (4)
  - CARDIAC FAILURE CONGESTIVE [None]
  - CARDIOVASCULAR DISORDER [None]
  - CEREBROVASCULAR ACCIDENT [None]
  - TRANSIENT ISCHAEMIC ATTACK [None]
